FAERS Safety Report 14596943 (Version 2)
Quarter: 2018Q2

REPORT INFORMATION
  Report Type: Report from Study
  Country: US (occurrence: US)
  Receive Date: 20180305
  Receipt Date: 20180524
  Transmission Date: 20180711
  Serious: No
  Sender: FDA-Public Use
  Company Number: US-ALEXION PHARMACEUTICALS INC.-A201802003

PATIENT
  Sex: Female

DRUGS (4)
  1. STRENSIQ [Suspect]
     Active Substance: ASFOTASE ALFA
     Dosage: 50 MG, SIX TIMES/WEEK
     Route: 058
  2. STRENSIQ [Suspect]
     Active Substance: ASFOTASE ALFA
     Dosage: 50 MG, SIX TIMES/WEEK
     Route: 058
  3. STRENSIQ [Suspect]
     Active Substance: ASFOTASE ALFA
     Indication: HYPOPHOSPHATASIA
     Dosage: 50 MG, SIX TIMES/WEEK
     Route: 058
     Dates: start: 20170309
  4. STRENSIQ [Suspect]
     Active Substance: ASFOTASE ALFA
     Dosage: 50 MG, SIX TIMES/WEEK
     Route: 058

REACTIONS (2)
  - Loss of personal independence in daily activities [Unknown]
  - Malaise [Unknown]
